FAERS Safety Report 10342332 (Version 1)
Quarter: 2014Q3

REPORT INFORMATION
  Report Type: Spontaneous
  Country: US (occurrence: US)
  Receive Date: 20140725
  Receipt Date: 20140725
  Transmission Date: 20150326
  Serious: No
  Sender: FDA-Public Use
  Company Number: US-GLAXOSMITHKLINE-A1028906A

PATIENT
  Age: 23 Year
  Sex: Male

DRUGS (4)
  1. LAMICTAL XR [Suspect]
     Active Substance: LAMOTRIGINE
     Indication: CONVULSION
     Dosage: 75MG PER DAY
     Route: 048
  2. OMEGA 3 [Concomitant]
     Active Substance: OMEGA-3 FATTY ACIDS
  3. CENTRUM VITAMINS [Concomitant]
  4. SYNTHROID [Concomitant]
     Active Substance: LEVOTHYROXINE SODIUM

REACTIONS (2)
  - Dry eye [Unknown]
  - Blepharitis [Not Recovered/Not Resolved]

NARRATIVE: CASE EVENT DATE: 20130516
